FAERS Safety Report 22919511 (Version 2)
Quarter: 2023Q4

REPORT INFORMATION
  Report Type: Spontaneous
  Country: PL (occurrence: PL)
  Receive Date: 20230908
  Receipt Date: 20231018
  Transmission Date: 20240110
  Serious: Yes (Death, Hospitalization)
  Sender: FDA-Public Use
  Company Number: PL-JNJFOC-20230905406

PATIENT
  Sex: Female

DRUGS (1)
  1. VELETRI [Suspect]
     Active Substance: EPOPROSTENOL
     Indication: Pulmonary arterial hypertension
     Route: 065
     Dates: start: 201704

REACTIONS (2)
  - Cerebral haemorrhage [Fatal]
  - Central nervous system haemorrhage [Unknown]

NARRATIVE: CASE EVENT DATE: 20230801
